FAERS Safety Report 21795411 (Version 2)
Quarter: 2023Q1

REPORT INFORMATION
  Report Type: Spontaneous
  Country: HK (occurrence: HK)
  Receive Date: 20221229
  Receipt Date: 20230111
  Transmission Date: 20230417
  Serious: Yes (Hospitalization)
  Sender: FDA-Public Use
  Company Number: HK-TEVA-2022-HK-2840426

PATIENT
  Age: 18 Year
  Sex: Male

DRUGS (1)
  1. DOXORUBICIN [Suspect]
     Active Substance: DOXORUBICIN
     Indication: Desmoid tumour
     Dosage: DOSAGE: TRANSARTERIAL CHEMOEMBOLISATION USING DOXORUBICIN-ELUTING BEADS (DEB-TACE) WAS PERFORMED...
     Route: 050

REACTIONS (2)
  - Muscle necrosis [Recovered/Resolved]
  - Product administered at inappropriate site [Unknown]
